FAERS Safety Report 8831225 (Version 1)
Quarter: 2012Q4

REPORT INFORMATION
  Report Type: Spontaneous
  Country: US (occurrence: None)
  Receive Date: 20121005
  Receipt Date: 20121005
  Transmission Date: 20130627
  Serious: Yes (Life-Threatening, Other)
  Sender: FDA-Public Use
  Company Number: None

PATIENT
  Age: 53 Year
  Sex: Male
  Weight: 99.79 kg

DRUGS (1)
  1. CLOPIDOGREL [Suspect]
     Indication: STROKE
     Dosage: 1 pill daily po
     Route: 048
     Dates: start: 20120901, end: 20121003

REACTIONS (5)
  - Headache [None]
  - Chest pain [None]
  - Feeling abnormal [None]
  - Product substitution issue [None]
  - Drug ineffective [None]
